FAERS Safety Report 9155439 (Version 1)
Quarter: 2013Q1

REPORT INFORMATION
  Report Type: Spontaneous
  Country: US (occurrence: US)
  Receive Date: 20130311
  Receipt Date: 20130311
  Transmission Date: 20140127
  Serious: No
  Sender: FDA-Public Use
  Company Number: US-ASTRAZENECA-2012SE07160

PATIENT
  Age: 70 Year
  Sex: Male
  Weight: 72.6 kg

DRUGS (4)
  1. SYMBICORT PMDI [Suspect]
     Indication: CHRONIC OBSTRUCTIVE PULMONARY DISEASE
     Dosage: 80 MCG OR 160 MCG, TWO PUFFS BID
     Route: 055
     Dates: start: 2009
  2. SYMBICORT PMDI [Suspect]
     Indication: CHRONIC OBSTRUCTIVE PULMONARY DISEASE
     Dosage: MIGHT HAVE THREE PUFFS INSTEAD OF TWO,TWO TIMES A DAY
     Route: 055
  3. SPIRIVA [Concomitant]
     Dosage: DAILY
     Route: 055
     Dates: start: 2009
  4. FORADIL [Concomitant]

REACTIONS (4)
  - Dyspnoea [Unknown]
  - Feeling abnormal [Unknown]
  - Candida infection [Unknown]
  - Circumstance or information capable of leading to medication error [Unknown]
